FAERS Safety Report 12764847 (Version 2)
Quarter: 2016Q3

REPORT INFORMATION
  Report Type: Spontaneous
  Country: IT (occurrence: IT)
  Receive Date: 20160921
  Receipt Date: 20160926
  Transmission Date: 20161109
  Serious: Yes (Hospitalization)
  Sender: FDA-Public Use
  Company Number: IT-ROCHE-1832165

PATIENT
  Age: 66 Year
  Sex: Female
  Weight: 61 kg

DRUGS (5)
  1. ZYDELIG [Suspect]
     Active Substance: IDELALISIB
     Route: 048
     Dates: start: 201609
  2. MABTHERA [Suspect]
     Active Substance: RITUXIMAB
     Indication: CHRONIC LYMPHOCYTIC LEUKAEMIA
     Dosage: 6 DOSES
     Route: 042
     Dates: start: 20160517, end: 20160812
  3. BACTRIM [Concomitant]
     Active Substance: SULFAMETHOXAZOLE\TRIMETHOPRIM
     Route: 065
     Dates: start: 20160717
  4. ZYDELIG [Suspect]
     Active Substance: IDELALISIB
     Indication: CHRONIC LYMPHOCYTIC LEUKAEMIA
     Route: 048
     Dates: start: 20160517, end: 20160818
  5. ACICLOVIR [Concomitant]
     Active Substance: ACYCLOVIR
     Route: 065
     Dates: start: 20160717

REACTIONS (1)
  - Hyperthermia [Recovering/Resolving]

NARRATIVE: CASE EVENT DATE: 20160818
